FAERS Safety Report 5388631-6 (Version None)
Quarter: 2007Q3

REPORT INFORMATION
  Report Type: 
  Country: None (occurrence: None)
  Receive Date: 20070716
  Receipt Date: 20070711
  Transmission Date: 20080115
  Serious: Yes (Hospitalization)
  Sender: FDA-Public Use
  Company Number: NO-ROXANE LABORATORIES, INC-2007-BP-17133RO

PATIENT
  Age: 83 Year
  Sex: Male
  Weight: 102 kg

DRUGS (9)
  1. METHOTREXATE [Suspect]
     Dosage: 20-40 MG AS NEEDED
  2. FUROSEMIDE [Suspect]
     Indication: FLUID RETENTION
  3. ERYTHROMYCIN [Suspect]
     Indication: SYSTEMIC ANTIBACTERIAL THERAPY
     Route: 042
  4. ERYTHROMYCIN [Suspect]
     Route: 048
  5. METOPROLOL SUCCINATE [Suspect]
  6. AMLODIPINE [Suspect]
  7. VALSARTAN AND HYDROCHLOROTHIAZIDE [Suspect]
  8. ASPIRIN [Suspect]
  9. SIMVASTATIN [Suspect]
     Dosage: 80 MG/DAY

REACTIONS (7)
  - ALANINE AMINOTRANSFERASE INCREASED [None]
  - ASPARTATE AMINOTRANSFERASE INCREASED [None]
  - BLOOD CREATINE PHOSPHOKINASE INCREASED [None]
  - MYOGLOBIN BLOOD INCREASED [None]
  - PARAPARESIS [None]
  - RHABDOMYOLYSIS [None]
  - WEIGHT DECREASED [None]
